FAERS Safety Report 10169726 (Version 2)
Quarter: 2014Q2

REPORT INFORMATION
  Report Type: Report from Study
  Country: US (occurrence: US)
  Receive Date: 20140513
  Receipt Date: 20140528
  Transmission Date: 20141212
  Serious: Yes (Life-Threatening, Hospitalization)
  Sender: FDA-Public Use
  Company Number: US-ACTELION-A-US2014-98567

PATIENT
  Age: 68 Year
  Sex: Female

DRUGS (9)
  1. MACITENTAN [Suspect]
     Indication: PULMONARY ARTERIAL HYPERTENSION
     Dosage: 10 UNK, UNK
     Route: 048
     Dates: start: 20140412, end: 20140415
  2. ADCIRCA [Concomitant]
     Dosage: 20 UNK, UNK
  3. FUROSEMIDE [Concomitant]
     Dosage: 20 UNK, UNK
  4. AMLODIPINE [Concomitant]
     Dosage: 10 MG, UNK
  5. POTASSIUM CHLORIDE [Concomitant]
     Dosage: 20 MEQ, UNK
  6. SIMVASTATIN [Concomitant]
     Dosage: 20 UNK, UNK
  7. METFORMIN [Concomitant]
     Indication: ESSENTIAL HYPERTENSION
     Dosage: 1000 MG, UNK
  8. SPIRIVA [Concomitant]
  9. ADVAIR [Concomitant]

REACTIONS (1)
  - Pulmonary oedema [Unknown]
